FAERS Safety Report 6527021-7 (Version None)
Quarter: 2009Q4

REPORT INFORMATION
  Report Type: 
  Country: None (occurrence: None)
  Receive Date: 20091229
  Receipt Date: 20091209
  Transmission Date: 20100525
  Serious: Yes (Death, Other)
  Sender: FDA-Public Use
  Company Number: 8052468

PATIENT
  Age: 75 Year
  Sex: Male

DRUGS (4)
  1. KEPPRA [Suspect]
     Dosage: (500 MG BID)
  2. CARBAMAZEPINE [Suspect]
  3. FACT-ACTIVE ASTHMA SPRAY [Concomitant]
  4. CORTISONE [Concomitant]

REACTIONS (1)
  - DYSPNOEA [None]
